FAERS Safety Report 9406832 (Version 1)
Quarter: 2013Q3

REPORT INFORMATION
  Report Type: Spontaneous
  Country: AU (occurrence: AU)
  Receive Date: 20130718
  Receipt Date: 20130718
  Transmission Date: 20140515
  Serious: Yes (Other)
  Sender: FDA-Public Use
  Company Number: PHHY2013AU074163

PATIENT
  Age: 29 Year
  Sex: Male

DRUGS (1)
  1. AFINITOR [Suspect]
     Indication: ANGIOMYOLIPOMA
     Dosage: 10 MG, DAILY

REACTIONS (2)
  - Inguinal hernia [Not Recovered/Not Resolved]
  - Hernia pain [Unknown]
